FAERS Safety Report 9660158 (Version 4)
Quarter: 2014Q1

REPORT INFORMATION
  Report Type: Spontaneous
  Country: GB (occurrence: GB)
  Receive Date: 20131031
  Receipt Date: 20140129
  Transmission Date: 20141002
  Serious: Yes (Other)
  Sender: FDA-Public Use
  Company Number: GB-PFIZER INC-2013159389

PATIENT
  Age: 56 Year
  Sex: Male

DRUGS (9)
  1. AMLODIPINE BESILATE [Suspect]
     Indication: HYPERTENSION
     Dosage: 5 MG, UNK
     Route: 048
     Dates: start: 201211
  2. LANSOPRAZOLE [Suspect]
  3. GILENYA [Suspect]
     Indication: RELAPSING-REMITTING MULTIPLE SCLEROSIS
     Dosage: 0.5 MG, UNK
     Route: 048
     Dates: start: 201112, end: 201302
  4. DOMPERIDONE [Concomitant]
  5. TADALAFIL [Concomitant]
  6. BACLOFEN [Concomitant]
  7. CITALOPRAM [Concomitant]
  8. LORATADINE [Concomitant]
  9. SIMVASTATIN [Concomitant]

REACTIONS (2)
  - Gynaecomastia [Not Recovered/Not Resolved]
  - Breast pain [Unknown]
